FAERS Safety Report 14839467 (Version 1)
Quarter: 2018Q2

REPORT INFORMATION
  Report Type: Report from Study
  Country: None (occurrence: KR)
  Receive Date: 20180502
  Receipt Date: 20180502
  Transmission Date: 20180711
  Serious: Yes (Hospitalization)
  Sender: FDA-Public Use
  Company Number: KR-ABBVIE-18K-090-2340679-00

PATIENT
  Age: 13 Year
  Sex: Male
  Weight: 28 kg

DRUGS (1)
  1. HUMIRA [Suspect]
     Active Substance: ADALIMUMAB
     Indication: CROHN^S DISEASE
     Route: 058
     Dates: start: 20170913

REACTIONS (2)
  - Pruritus [Unknown]
  - Ileus paralytic [Recovered/Resolved]

NARRATIVE: CASE EVENT DATE: 201804
